FAERS Safety Report 6725694-7 (Version None)
Quarter: 2010Q2

REPORT INFORMATION
  Report Type: 
  Country: None (occurrence: None)
  Receive Date: 20100514
  Receipt Date: 20100505
  Transmission Date: 20101027
  Serious: Yes (Other)
  Sender: FDA-Public Use
  Company Number: BE-SANOFI-AVENTIS-2010SA026333

PATIENT
  Age: 50 Year
  Sex: Male

DRUGS (6)
  1. OXALIPLATIN [Suspect]
     Dates: start: 20100423, end: 20100424
  2. ELVORIN [Concomitant]
  3. FLUOROURACIL [Concomitant]
  4. EMEND [Concomitant]
  5. TROPISETRON [Concomitant]
  6. SOLU-MEDROL [Concomitant]

REACTIONS (1)
  - HAEMOLYSIS [None]
